FAERS Safety Report 13351428 (Version 3)
Quarter: 2017Q2

REPORT INFORMATION
  Report Type: Spontaneous
  Country: US (occurrence: US)
  Receive Date: 20170320
  Receipt Date: 20170403
  Transmission Date: 20170830
  Serious: Yes (Other)
  Sender: FDA-Public Use
  Company Number: US-PFIZER INC-2015007260

PATIENT
  Age: 50 Year
  Sex: Female
  Weight: 70 kg

DRUGS (12)
  1. LIPITOR [Concomitant]
     Active Substance: ATORVASTATIN CALCIUM
     Indication: BLOOD CHOLESTEROL ABNORMAL
     Dosage: 20 MG, 1X/DAY
  2. SYNTHROID [Concomitant]
     Active Substance: LEVOTHYROXINE SODIUM
     Indication: THYROID DISORDER
     Dosage: 1.5 DF, 1X/DAY
  3. ARIMIDEX [Suspect]
     Active Substance: ANASTROZOLE
     Indication: OESTROGEN RECEPTOR POSITIVE BREAST CANCER
     Dosage: 1 MG, DAILY
     Route: 048
     Dates: start: 201210
  4. ONE-A-DAY VITAMIN [Concomitant]
     Dosage: UNK
  5. LIPITOR [Concomitant]
     Active Substance: ATORVASTATIN CALCIUM
     Dosage: 10 MG, ALTERNATE DAY
     Route: 048
  6. CALCIUM [Concomitant]
     Active Substance: CALCIUM
     Dosage: UNK
  7. METOPROLOL SUCCINATE. [Suspect]
     Active Substance: METOPROLOL SUCCINATE
     Indication: BLOOD PRESSURE ABNORMAL
     Dosage: 25 MG, DAILY
     Route: 048
  8. FISH OIL [Concomitant]
     Active Substance: FISH OIL
     Dosage: UNK
  9. ATENOLOL. [Suspect]
     Active Substance: ATENOLOL
     Dosage: UNK
  10. METOPROLOL TARTRATE. [Suspect]
     Active Substance: METOPROLOL TARTRATE
     Indication: BLOOD PRESSURE ABNORMAL
     Dosage: 50 MG, DAILY
     Route: 048
  11. SYNTHROID [Concomitant]
     Active Substance: LEVOTHYROXINE SODIUM
     Dosage: 32.5UG UNKNOWN
     Route: 048
     Dates: start: 2012
  12. FLUTICASONE. [Concomitant]
     Active Substance: FLUTICASONE
     Dosage: UNK
     Route: 055

REACTIONS (18)
  - Non-alcoholic steatohepatitis [Unknown]
  - Pancreatic cyst [Unknown]
  - Lip injury [Unknown]
  - Vertigo [Unknown]
  - Haematoma [Unknown]
  - Effusion [Unknown]
  - Gastric polyps [Unknown]
  - Lip dry [Unknown]
  - Limb discomfort [Recovered/Resolved]
  - Weight decreased [Unknown]
  - Biliary dilatation [Unknown]
  - Lip ulceration [Unknown]
  - Abdominal mass [Unknown]
  - Lip pain [Unknown]
  - Ulcer [Unknown]
  - Abdominal discomfort [Unknown]
  - Trigger finger [Unknown]
  - High density lipoprotein decreased [Unknown]

NARRATIVE: CASE EVENT DATE: 2000
